FAERS Safety Report 21924753 (Version 1)
Quarter: 2023Q1

REPORT INFORMATION
  Report Type: Spontaneous
  Country: US (occurrence: US)
  Receive Date: 20230130
  Receipt Date: 20230130
  Transmission Date: 20230418
  Serious: Yes (Other)
  Sender: FDA-Public Use
  Company Number: US-AMGEN-USASP2023014219

PATIENT
  Age: 71 Year

DRUGS (3)
  1. KYPROLIS [Suspect]
     Active Substance: CARFILZOMIB
     Indication: Plasma cell myeloma
     Dosage: 154 MILLIGRAM, 10 MG VIAL
     Route: 065
     Dates: start: 20210407
  2. KYPROLIS [Suspect]
     Active Substance: CARFILZOMIB
     Dosage: 154 MILLIGRAM, 60 MG VIAL
     Route: 065
  3. KYPROLIS [Suspect]
     Active Substance: CARFILZOMIB
     Dosage: 154 MILLIGRAM, 30 MG VIAL
     Route: 065

REACTIONS (1)
  - Clostridium difficile infection [Unknown]

NARRATIVE: CASE EVENT DATE: 20230101
